FAERS Safety Report 11611634 (Version 3)
Quarter: 2015Q4

REPORT INFORMATION
  Report Type: Spontaneous
  Country: US (occurrence: US)
  Receive Date: 20151008
  Receipt Date: 20151027
  Transmission Date: 20160304
  Serious: Yes (Other)
  Sender: FDA-Public Use
  Company Number: CHPA2015US011570

PATIENT
  Age: 79 Year
  Sex: Female

DRUGS (3)
  1. GAS-X [Suspect]
     Active Substance: DIMETHICONE
     Indication: ABDOMINAL DISTENSION
     Dosage: 1 TO 2 DF, PRN
     Route: 048
     Dates: start: 201509
  2. GAS-X [Suspect]
     Active Substance: DIMETHICONE
     Indication: ABDOMINAL DISCOMFORT
  3. GAS-X [Suspect]
     Active Substance: DIMETHICONE
     Indication: FLATULENCE
     Dosage: 1 TO 2 DF, PRN
     Route: 048

REACTIONS (4)
  - Stress [Recovering/Resolving]
  - Wrong technique in product usage process [Unknown]
  - Colon cancer [Recovered/Resolved]
  - Abdominal discomfort [Recovering/Resolving]

NARRATIVE: CASE EVENT DATE: 201506
